FAERS Safety Report 5040694-3 (Version None)
Quarter: 2006Q2

REPORT INFORMATION
  Report Type: 
  Country: None (occurrence: None)
  Receive Date: 20060630
  Receipt Date: 20060630
  Transmission Date: 20061013
  Serious: Yes (Other)
  Sender: FDA-Public Use
  Company Number: None

PATIENT
  Age: 51 Year
  Sex: Female

DRUGS (1)
  1. PROZAC [Suspect]
     Indication: MAJOR DEPRESSION
     Dosage: AT THAT TIME  40MG
     Dates: start: 20010901, end: 20011201

REACTIONS (2)
  - DEPRESSION [None]
  - THERAPEUTIC RESPONSE UNEXPECTED WITH DRUG SUBSTITUTION [None]
